FAERS Safety Report 9370131 (Version 3)
Quarter: 2013Q3

REPORT INFORMATION
  Report Type: Spontaneous
  Country: BR (occurrence: BR)
  Receive Date: 20130626
  Receipt Date: 20130801
  Transmission Date: 20140515
  Serious: Yes (Other)
  Sender: FDA-Public Use
  Company Number: PHHY2013BR064377

PATIENT
  Age: 32 Year
  Sex: Female
  Weight: 85 kg

DRUGS (6)
  1. SINVASTACOR [Suspect]
     Indication: BLOOD CHOLESTEROL
     Dosage: 2 DF, AT NIGHT
     Route: 048
     Dates: start: 20130617
  2. SINVASTACOR [Suspect]
     Indication: BLOOD TRIGLYCERIDES INCREASED
  3. RIVOTRIL [Concomitant]
     Indication: DEPRESSION
  4. SERTRALINE [Concomitant]
  5. FLUOXETINE [Concomitant]
     Indication: DEPRESSION
  6. OMEPRAZOLE [Concomitant]
     Indication: GASTRITIS

REACTIONS (1)
  - Chest pain [Not Recovered/Not Resolved]
